FAERS Safety Report 7827855-2 (Version None)
Quarter: 2011Q4

REPORT INFORMATION
  Report Type: 
  Country: None (occurrence: None)
  Receive Date: 20111020
  Receipt Date: 20110919
  Transmission Date: 20120403
  Serious: Yes (Hospitalization, Other)
  Sender: FDA-Public Use
  Company Number: US-BAYER-2010-004375

PATIENT
  Age: 27 Year
  Sex: Female
  Weight: 146 kg

DRUGS (43)
  1. HYDROXYZINE HYDROCHLORIDE [Concomitant]
     Dosage: UNK
     Dates: start: 20081206
  2. PHENERGAN HCL [Concomitant]
  3. LORTAB [Concomitant]
  4. REGLAN [Concomitant]
  5. AMBIEN [Concomitant]
     Dosage: 10 MG, UNK
     Route: 048
  6. NORETHINDRONE [Concomitant]
  7. PROCHLORPERAZINE [Concomitant]
  8. PROMETHAZINE [Concomitant]
  9. MAXALT [Concomitant]
     Dosage: 10 MG, UNK
     Route: 048
  10. FEMCOM [Concomitant]
     Dosage: UNK
     Dates: start: 20090612, end: 20090707
  11. AMOXICILLIN [Concomitant]
     Dosage: UNK
     Dates: start: 20091106, end: 20091115
  12. KEFZOL [Concomitant]
  13. TESSALON [Concomitant]
     Dosage: 100 MG, UNK
     Route: 048
  14. HYDROCODONE BITARTRATE AND ACETAMINOPHEN [Concomitant]
  15. PRENATAL PLUS IRON [Concomitant]
  16. ZOLPIDEM [Concomitant]
     Dosage: UNK
     Dates: start: 20091106, end: 20091206
  17. DROSPIRENONE AND ETHINYL ESTRADIOL [Suspect]
     Indication: MENSTRUATION IRREGULAR
     Dosage: UNK
     Dates: start: 20090707, end: 20100201
  18. YAZ [Suspect]
     Dosage: UNK
     Dates: start: 20090101, end: 20100101
  19. KLOR-CON [Concomitant]
     Dosage: 10 MEQ, QD
  20. COUGH AND COLD PREPARATIONS [Concomitant]
  21. FLEXERIL [Concomitant]
     Dosage: 10 MG, UNK
     Route: 048
  22. DESOXIMETASONE [Concomitant]
     Dosage: UNK
     Dates: start: 20090216
  23. DEMEROL [Concomitant]
  24. VERSED [Concomitant]
  25. ZOFRAN [Concomitant]
  26. YASMIN [Suspect]
     Indication: ORAL CONTRACEPTION
     Dosage: UNK
     Dates: start: 20060614, end: 20060714
  27. NITROFURANTOIN [Concomitant]
     Dosage: 100 MG, QD
  28. FLUCONAZOLE [Concomitant]
     Dosage: UNK
     Dates: start: 20060721
  29. FERROUS SULFATE TAB [Concomitant]
     Dosage: UNK
     Dates: start: 20090430, end: 20090530
  30. AMOXICILLIN [Concomitant]
     Dosage: UNK
     Dates: start: 20100111
  31. CYCLOBENZAPRINE [Concomitant]
  32. METHYLPREDNISOLONE [Concomitant]
  33. METFORMIN HCL [Concomitant]
  34. BUPIVACAINE HCL [Concomitant]
  35. MORPHINE [Concomitant]
  36. CEPHADYN [Concomitant]
     Dosage: 50 MG, UNK
     Route: 048
  37. YASMIN [Suspect]
     Dosage: UNK
     Dates: start: 20090701, end: 20100201
  38. DARVOCET [Concomitant]
  39. PENICILLIN [Concomitant]
     Dosage: UNK
     Dates: start: 20060714, end: 20060718
  40. NAPROXEN SODIUM [Concomitant]
     Dosage: UNK
     Dates: start: 20090430
  41. OXYCODONE HCL AND ACETAMINOPHEN [Concomitant]
     Dosage: UNK
     Dates: start: 20090622
  42. LEVSIN [Concomitant]
  43. ROBINUL [Concomitant]

REACTIONS (6)
  - GALLBLADDER NON-FUNCTIONING [None]
  - PAIN [None]
  - CHOLECYSTITIS CHRONIC [None]
  - CHOLELITHIASIS [None]
  - INJURY [None]
  - GALLBLADDER DISORDER [None]
